FAERS Safety Report 12370926 (Version 1)
Quarter: 2016Q2

REPORT INFORMATION
  Report Type: Spontaneous
  Country: US (occurrence: US)
  Receive Date: 20160516
  Receipt Date: 20160516
  Transmission Date: 20160815
  Serious: No
  Sender: FDA-Public Use
  Company Number: PHEH2016US011372

PATIENT
  Sex: Female

DRUGS (3)
  1. VITAMIN D [Suspect]
     Active Substance: CHOLECALCIFEROL
     Indication: PRODUCT USED FOR UNKNOWN INDICATION
     Route: 065
  2. ENTRESTO [Suspect]
     Active Substance: SACUBITRIL\VALSARTAN
     Dosage: UNK
  3. ENTRESTO [Suspect]
     Active Substance: SACUBITRIL\VALSARTAN
     Indication: HYPERTENSION
     Dosage: 50 MG, UNK
     Route: 065

REACTIONS (10)
  - Balance disorder [Unknown]
  - Blood pressure fluctuation [Unknown]
  - Malaise [Unknown]
  - Peripheral coldness [Unknown]
  - Headache [Unknown]
  - Oropharyngeal pain [Unknown]
  - Off label use [Unknown]
  - Constipation [Unknown]
  - Insomnia [Unknown]
  - Fatigue [Unknown]
